FAERS Safety Report 20772400 (Version 2)
Quarter: 2022Q2

REPORT INFORMATION
  Report Type: Spontaneous
  Country: CA (occurrence: CA)
  Receive Date: 20220502
  Receipt Date: 20220524
  Transmission Date: 20220721
  Serious: Yes (Other)
  Sender: FDA-Public Use
  Company Number: CA-SUN PHARMACEUTICAL INDUSTRIES LTD-2022R1-334516

PATIENT
  Age: 56 Year
  Sex: Female

DRUGS (1)
  1. CEQUA [Suspect]
     Active Substance: CYCLOSPORINE
     Indication: Product used for unknown indication
     Dosage: 0.25 UNK
     Route: 047
     Dates: start: 20220409, end: 20220416

REACTIONS (4)
  - Conjunctival haemorrhage [Recovering/Resolving]
  - Eye irritation [Recovering/Resolving]
  - Hyperaemia [Recovering/Resolving]
  - Therapy cessation [Unknown]
